FAERS Safety Report 10674039 (Version 2)
Quarter: 2014Q4

REPORT INFORMATION
  Report Type: Spontaneous
  Country: JP (occurrence: JP)
  Receive Date: 20141224
  Receipt Date: 20141224
  Transmission Date: 20150529
  Serious: Yes (Other)
  Sender: FDA-Public Use
  Company Number: PHHY2014JP164918

PATIENT
  Sex: Male

DRUGS (3)
  1. GRACEPTOR [Concomitant]
     Active Substance: TACROLIMUS
     Indication: KIDNEY TRANSPLANT REJECTION
     Dosage: 3 MG, UNK
     Route: 048
  2. CERTICAN [Suspect]
     Active Substance: EVEROLIMUS
     Indication: KIDNEY TRANSPLANT REJECTION
     Dosage: 2 MG, QD
     Route: 048
  3. MEDROL [Concomitant]
     Active Substance: METHYLPREDNISOLONE
     Indication: KIDNEY TRANSPLANT REJECTION
     Dosage: 4 MG, UNK
     Route: 048

REACTIONS (1)
  - Proteinuria [Recovered/Resolved]

NARRATIVE: CASE EVENT DATE: 201405
